FAERS Safety Report 7734673-2 (Version None)
Quarter: 2011Q3

REPORT INFORMATION
  Report Type: 
  Country: None (occurrence: None)
  Receive Date: 20110907
  Receipt Date: 20110831
  Transmission Date: 20111222
  Serious: Yes (Hospitalization)
  Sender: FDA-Public Use
  Company Number: US-MERCK-1108USA02349

PATIENT
  Age: 75 Year
  Sex: Female

DRUGS (3)
  1. MEVACOR [Suspect]
     Indication: BLOOD CHOLESTEROL
     Route: 048
  2. METOPROLOL [Concomitant]
     Route: 065
  3. DIOVAN [Concomitant]
     Route: 065

REACTIONS (4)
  - WRONG TECHNIQUE IN DRUG USAGE PROCESS [None]
  - MALAISE [None]
  - BLOOD PRESSURE [None]
  - ABDOMINAL DISCOMFORT [None]
